FAERS Safety Report 6930328-2 (Version None)
Quarter: 2010Q3

REPORT INFORMATION
  Report Type: 
  Country: None (occurrence: None)
  Receive Date: 20100818
  Receipt Date: 20100809
  Transmission Date: 20110219
  Serious: Yes (Other)
  Sender: FDA-Public Use
  Company Number: PE-ROCHE-720454

PATIENT
  Sex: Male
  Weight: 70 kg

DRUGS (4)
  1. ROACCUTAN [Suspect]
     Indication: ACNE
     Dosage: FREQUENCY REPORTED: QD.
     Route: 048
     Dates: start: 20100405, end: 20100617
  2. MELOXICAM [Concomitant]
     Dosage: DRUG NAME REPORTED AS MELOXICAN. FREQUENCY REPORTED: QD.
     Route: 048
     Dates: start: 20100617, end: 20100702
  3. IBUPROFEN [Concomitant]
     Dosage: FREQUENCY REPORTED: QD.
     Route: 048
     Dates: start: 20100702, end: 20100717
  4. ARCOXIA [Concomitant]
     Dosage: FREQUENCY REPORTED: QD.
     Route: 048
     Dates: start: 20100718, end: 20100725

REACTIONS (2)
  - JOINT EFFUSION [None]
  - TENDONITIS [None]
